FAERS Safety Report 19887853 (Version 3)
Quarter: 2022Q1

REPORT INFORMATION
  Report Type: Report from Study
  Country: US (occurrence: US)
  Receive Date: 20210928
  Receipt Date: 20220316
  Transmission Date: 20220423
  Serious: Yes (Other)
  Sender: FDA-Public Use
  Company Number: US-NOVARTISPH-NVSC2021US215572

PATIENT
  Age: 37 Year
  Sex: Female
  Weight: 81.6 kg

DRUGS (8)
  1. GILENYA [Suspect]
     Active Substance: FINGOLIMOD HYDROCHLORIDE
     Indication: Relapsing-remitting multiple sclerosis
     Dosage: 0.5 MG, QD
     Route: 048
     Dates: start: 20210514, end: 20220301
  2. GILENYA [Suspect]
     Active Substance: FINGOLIMOD HYDROCHLORIDE
     Indication: Multiple sclerosis
  3. LORAZEPAM [Concomitant]
     Active Substance: LORAZEPAM
     Indication: Product used for unknown indication
     Dosage: 0.5 MG, QD, (TAKE 1 TABLET 1 HR BEFORE PROCEDURE)
     Route: 048
  4. DULOXETINE [Concomitant]
     Active Substance: DULOXETINE
     Indication: Product used for unknown indication
     Dosage: 60 MG, BID
     Route: 048
  5. BACLOFEN [Concomitant]
     Active Substance: BACLOFEN
     Indication: Product used for unknown indication
     Dosage: 10 MG, TID
     Route: 048
  6. VITAMIN D [Concomitant]
     Active Substance: VITAMIN D NOS
     Indication: Product used for unknown indication
     Dosage: UNK
     Route: 065
  7. TYSABRI [Concomitant]
     Active Substance: NATALIZUMAB
     Indication: Product used for unknown indication
     Dosage: UNK
     Route: 065
  8. CYMBALTA [Concomitant]
     Active Substance: DULOXETINE HYDROCHLORIDE
     Indication: Depression
     Dosage: 60 MG, QD
     Route: 065

REACTIONS (45)
  - Tunnel vision [Unknown]
  - Optic neuritis [Unknown]
  - Paralysis [Unknown]
  - Multiple sclerosis relapse [Recovering/Resolving]
  - Eye pain [Unknown]
  - Seizure [Unknown]
  - Suicidal ideation [Unknown]
  - Vision blurred [Unknown]
  - Circulatory collapse [Unknown]
  - Loss of control of legs [Unknown]
  - Aphasia [Unknown]
  - Hypotension [Unknown]
  - Hypoaesthesia [Unknown]
  - Hyperacusis [Unknown]
  - Asthenia [Unknown]
  - Dysphagia [Unknown]
  - Urinary incontinence [Unknown]
  - Paraesthesia [Unknown]
  - Anal incontinence [Unknown]
  - Vertigo [Unknown]
  - Altered visual depth perception [Unknown]
  - Fatigue [Unknown]
  - COVID-19 [Unknown]
  - Ear pain [Unknown]
  - Back pain [Unknown]
  - Tinnitus [Unknown]
  - Hypoacusis [Unknown]
  - Tremor [Unknown]
  - Anxiety [Unknown]
  - Amnesia [Unknown]
  - Sleep disorder [Unknown]
  - Eating disorder [Unknown]
  - Temperature intolerance [Unknown]
  - Hyperphagia [Unknown]
  - Polydipsia [Unknown]
  - Fall [Unknown]
  - Lhermitte^s sign [Unknown]
  - Bladder dysfunction [Unknown]
  - Functional gastrointestinal disorder [Unknown]
  - Muscle spasms [Unknown]
  - Gait disturbance [Unknown]
  - Diarrhoea [Unknown]
  - Headache [Unknown]
  - Vomiting [Unknown]
  - Nausea [Unknown]

NARRATIVE: CASE EVENT DATE: 20210821
